FAERS Safety Report 5712553-1 (Version None)
Quarter: 2008Q2

REPORT INFORMATION
  Report Type: 
  Country: None (occurrence: None)
  Receive Date: 20080422
  Receipt Date: 20080410
  Transmission Date: 20081010
  Serious: Yes (Life-Threatening, Hospitalization, Disabling)
  Sender: FDA-Public Use
  Company Number: GB-ELI_LILLY_AND_COMPANY-GB200804002973

PATIENT
  Age: 52 Year
  Sex: Female
  Weight: 65 kg

DRUGS (6)
  1. GEMCITABINE HCL [Suspect]
     Indication: BILE DUCT CANCER
     Dosage: 1197 MG, UNKNOWN
     Route: 042
     Dates: start: 20070426, end: 20070927
  2. CYCLIZINE [Concomitant]
     Indication: ANTIEMETIC SUPPORTIVE CARE
     Dosage: 50 MG, 3/D
     Route: 048
     Dates: start: 20070505
  3. DOMPERIDONE [Concomitant]
     Indication: ANTIEMETIC SUPPORTIVE CARE
     Dosage: 20 MG, DAILY (1/D)
     Route: 048
     Dates: start: 20070426
  4. GABAPENTIN [Concomitant]
     Indication: ABDOMINAL PAIN
     Dosage: 300 MG, 3/D
     Route: 048
     Dates: start: 20070505
  5. PARACETAMOL [Concomitant]
     Indication: ABDOMINAL PAIN
     Dosage: 1 G, 4/D
     Route: 048
  6. TRAMADOL HCL [Concomitant]
     Indication: ABDOMINAL PAIN
     Dosage: 100 MG, 4/D
     Route: 048

REACTIONS (5)
  - CEREBROVASCULAR ACCIDENT [None]
  - HYPERTENSION [None]
  - RENAL FAILURE [None]
  - RESPIRATORY FAILURE [None]
  - THROMBOTIC THROMBOCYTOPENIC PURPURA [None]
